FAERS Safety Report 16249701 (Version 2)
Quarter: 2019Q2

REPORT INFORMATION
  Report Type: Spontaneous
  Country: CN (occurrence: CN)
  Receive Date: 20190429
  Receipt Date: 20190520
  Transmission Date: 20190711
  Serious: Yes (Hospitalization)
  Sender: FDA-Public Use
  Company Number: PHHY2019CN093983

PATIENT
  Age: 23 Year
  Sex: Female

DRUGS (8)
  1. MANNITOL. [Concomitant]
     Active Substance: MANNITOL
     Indication: PRODUCT USED FOR UNKNOWN INDICATION
     Dosage: 400 ML, UNK
     Route: 042
  2. ALPHAGAN P [Concomitant]
     Active Substance: BRIMONIDINE TARTRATE
     Indication: PRODUCT USED FOR UNKNOWN INDICATION
     Dosage: UNK UNK, BID
     Route: 047
  3. LEVOFLOXACIN. [Concomitant]
     Active Substance: LEVOFLOXACIN
     Indication: PRODUCT USED FOR UNKNOWN INDICATION
     Dosage: UNK UNK, QID
     Route: 065
  4. AZOPT [Suspect]
     Active Substance: BRINZOLAMIDE
     Dosage: UNK, TID
     Route: 047
     Dates: start: 20190321
  5. MIKELAN [Concomitant]
     Active Substance: CARTEOLOL HYDROCHLORIDE
     Indication: ANGLE CLOSURE GLAUCOMA
     Dosage: UNK UNK, BID
     Route: 065
     Dates: start: 20190321
  6. MANNITOL. [Concomitant]
     Active Substance: MANNITOL
     Dosage: 250 ML, UNK
     Route: 042
  7. FLUOROMETHOLONE. [Concomitant]
     Active Substance: FLUOROMETHOLONE
     Indication: PRODUCT USED FOR UNKNOWN INDICATION
     Dosage: UNK UNK, TID
     Route: 047
  8. AZOPT [Suspect]
     Active Substance: BRINZOLAMIDE
     Indication: ANGLE CLOSURE GLAUCOMA
     Dosage: UNK
     Route: 047

REACTIONS (13)
  - Intraocular pressure increased [Recovered/Resolved]
  - Eye disorder [Recovered/Resolved]
  - Lenticular opacities [Unknown]
  - Deep anterior chamber of the eye [Unknown]
  - Keratic precipitates [Unknown]
  - Optic disc disorder [Recovered/Resolved]
  - Conjunctival hyperaemia [Recovered/Resolved]
  - Eye haemorrhage [Unknown]
  - Off label use [Unknown]
  - Corneal oedema [Recovered/Resolved]
  - Headache [Unknown]
  - Pupils unequal [Unknown]
  - Eye pain [Unknown]
